FAERS Safety Report 4540453-1 (Version None)
Quarter: 2004Q4

REPORT INFORMATION
  Report Type: 
  Country: None (occurrence: None)
  Receive Date: 20041229
  Receipt Date: 20041217
  Transmission Date: 20050328
  Serious: Yes (Death, Hospitalization, Other)
  Sender: FDA-Public Use
  Company Number: US-JNJFOC-20040907147

PATIENT
  Sex: Female

DRUGS (25)
  1. REMICADE [Suspect]
     Route: 042
  2. REMICADE [Suspect]
     Route: 042
  3. REMICADE [Suspect]
     Route: 042
  4. REMICADE [Suspect]
     Route: 042
  5. REMICADE [Suspect]
     Route: 042
  6. REMICADE [Suspect]
     Route: 042
  7. REMICADE [Suspect]
     Route: 042
  8. REMICADE [Suspect]
     Route: 042
  9. REMICADE [Suspect]
     Route: 042
  10. REMICADE [Suspect]
     Route: 042
  11. REMICADE [Suspect]
     Route: 042
  12. REMICADE [Suspect]
     Route: 042
  13. REMICADE [Suspect]
     Indication: RHEUMATOID ARTHRITIS
     Route: 042
  14. PREDNISONE [Concomitant]
  15. LOPRESSOR [Concomitant]
  16. XANAX [Concomitant]
  17. OS-CAL [Concomitant]
  18. OS-CAL [Concomitant]
  19. AGRYLIN [Concomitant]
  20. PRILOSEC [Concomitant]
  21. BENICAR [Concomitant]
  22. DILANTIN [Concomitant]
  23. METHOTREXATE [Concomitant]
  24. FOLIC ACID [Concomitant]
  25. FOSAMAX [Concomitant]

REACTIONS (23)
  - ANAEMIA OF CHRONIC DISEASE [None]
  - AORTIC VALVE INCOMPETENCE [None]
  - CAROTID ARTERY ANEURYSM [None]
  - CEREBRAL INFARCTION [None]
  - CEREBROVASCULAR ACCIDENT [None]
  - CONDITION AGGRAVATED [None]
  - CONVULSION [None]
  - DEATH [None]
  - DEHYDRATION [None]
  - FATIGUE [None]
  - INTERSTITIAL LUNG DISEASE [None]
  - LUNG NEOPLASM [None]
  - PANCYTOPENIA [None]
  - PNEUMONIA [None]
  - PULMONARY FIBROSIS [None]
  - PULMONARY MYCOSIS [None]
  - PYELONEPHRITIS [None]
  - RENAL FAILURE [None]
  - RHEUMATOID ARTHRITIS [None]
  - THROMBOCYTOPENIA [None]
  - URINARY TRACT INFECTION [None]
  - VASCULITIS CEREBRAL [None]
  - VENTRICULAR HYPERTROPHY [None]
